FAERS Safety Report 4414106-4 (Version None)
Quarter: 2004Q3

REPORT INFORMATION
  Report Type: 
  Country: None (occurrence: None)
  Receive Date: 20040728
  Receipt Date: 20040715
  Transmission Date: 20050211
  Serious: Yes (Other)
  Sender: FDA-Public Use
  Company Number: 2004048216

PATIENT
  Sex: Male
  Weight: 64 kg

DRUGS (2)
  1. NEURONTIN [Suspect]
     Indication: EPILEPSY
     Dosage: 900 MG (300 MG, 3 IN 1 D), ORAL
     Route: 048
     Dates: start: 20040301, end: 20040325
  2. CARBAMAZEPINE [Concomitant]

REACTIONS (2)
  - AGITATION [None]
  - GRAND MAL CONVULSION [None]
